FAERS Safety Report 10099400 (Version 3)
Quarter: 2014Q2

REPORT INFORMATION
  Report Type: Report from Study
  Country: CN (occurrence: CN)
  Receive Date: 20140423
  Receipt Date: 20140604
  Transmission Date: 20141212
  Serious: Yes (Hospitalization)
  Sender: FDA-Public Use
  Company Number: CN-ROCHE-1276998

PATIENT
  Age: 48 Year
  Sex: Female
  Weight: 64 kg

DRUGS (18)
  1. OBINUTUZUMAB [Suspect]
     Indication: B-CELL LYMPHOMA
     Dosage: VOLUME OF LAST GA101 TAKEN : 1000 ML, DOSE CONCENTRATION OF LAST GA101 TAKEN: 4 MG/ML, LAST DOSE PRI
     Route: 042
     Dates: start: 20130905
  2. CYCLOPHOSPHAMIDE [Suspect]
     Indication: B-CELL LYMPHOMA
     Dosage: DOSE OF LAST CYCLOPHOSPHAMIDE TAKEN: 1252.5 MG
     Route: 042
     Dates: start: 20130906
  3. DOXORUBICIN [Suspect]
     Indication: B-CELL LYMPHOMA
     Dosage: DOSE OF LAST DOXORUBICIN TAKEN: 83.5 MG
     Route: 042
     Dates: start: 20130906
  4. VINCRISTINE [Suspect]
     Indication: B-CELL LYMPHOMA
     Dosage: DOSE OF LAST VINCRISTINE TAKEN: 2 MG
     Route: 040
     Dates: start: 20130906
  5. PREDNISONE [Suspect]
     Indication: B-CELL LYMPHOMA
     Dosage: DOSE OF LAST PREDNISONE:100 MG, LAST DOE PRIOR TO SAE: 10/SEP/2013
     Route: 048
     Dates: start: 20130906
  6. OMEPRAZOLE [Concomitant]
     Route: 065
     Dates: start: 20130906, end: 20130910
  7. PARACETAMOL [Concomitant]
     Indication: PAIN
     Route: 065
     Dates: start: 20130905, end: 20130905
  8. PARACETAMOL [Concomitant]
     Route: 065
     Dates: start: 20130912, end: 20130912
  9. PROMETHAZINE HYDROCHLORIDE [Concomitant]
     Indication: SEDATION
     Route: 065
     Dates: start: 20130905, end: 20130905
  10. PROMETHAZINE HYDROCHLORIDE [Concomitant]
     Route: 065
     Dates: start: 20130912, end: 20130912
  11. PALONOSETRON HYDROCHLORIDE [Concomitant]
     Route: 065
     Dates: start: 20130906, end: 20130906
  12. METOCLOPRAMIDE DIHYDROCHLORIDE [Concomitant]
     Route: 065
     Dates: start: 20130906, end: 20130906
  13. DIAMMONIUM GLYCYRRHIZINATE [Concomitant]
     Route: 065
     Dates: start: 20130911, end: 20130911
  14. DIAMMONIUM GLYCYRRHIZINATE [Concomitant]
     Route: 065
     Dates: start: 20130913, end: 20130913
  15. FILGRASTIM [Concomitant]
     Route: 065
     Dates: start: 20130913, end: 20130918
  16. FILGRASTIM [Concomitant]
     Route: 065
     Dates: start: 20130918, end: 20130922
  17. GLYCYRRHIZIN [Concomitant]
     Route: 065
     Dates: start: 20130916, end: 20130924
  18. POLYENEPHOSPHATIDYL CHOLINE [Concomitant]
     Route: 065
     Dates: start: 20130916, end: 20130929

REACTIONS (1)
  - Febrile neutropenia [Recovered/Resolved]
